FAERS Safety Report 7473138-2 (Version None)
Quarter: 2011Q2

REPORT INFORMATION
  Report Type: 
  Country: None (occurrence: None)
  Receive Date: 20110511
  Receipt Date: 20110504
  Transmission Date: 20111010
  Serious: Yes (Other)
  Sender: FDA-Public Use
  Company Number: PHHY2011GB37370

PATIENT
  Age: 23 Year
  Sex: Female

DRUGS (4)
  1. INSULIN [Suspect]
     Dosage: UNK UKN, UNK
  2. SIMVASTATIN [Suspect]
     Dosage: UNK UKN, UNK
  3. ORAL CONTRACEPTIVE NOS [Suspect]
     Dosage: UNK UKN, UNK
  4. METFORMIN HCL [Suspect]
     Dosage: UNK UKN, UNK

REACTIONS (7)
  - PO2 INCREASED [None]
  - PCO2 DECREASED [None]
  - MYDRIASIS [None]
  - BLOOD PH DECREASED [None]
  - BLOOD GLUCOSE INCREASED [None]
  - BLINDNESS [None]
  - DIABETIC KETOACIDOSIS [None]
